FAERS Safety Report 26067316 (Version 8)
Quarter: 2025Q4

REPORT INFORMATION
  Report Type: Spontaneous
  Country: CA (occurrence: CA)
  Receive Date: 20251120
  Receipt Date: 20251202
  Transmission Date: 20260118
  Serious: Yes (Life-Threatening, Hospitalization, Disabling, Congenital Anomaly, Other)
  Sender: TEVA
  Company Number: CA-TEVA-VS-3393144

PATIENT
  Age: 80 Year
  Sex: Male

DRUGS (46)
  1. METOPROLOL [Suspect]
     Active Substance: METOPROLOL
     Indication: Drug interaction
     Dosage: TIME INTERVAL: 0.33333333 DAYS
     Route: 065
  2. METOPROLOL [Suspect]
     Active Substance: METOPROLOL
     Indication: Drug interaction
     Route: 065
  3. METOPROLOL [Suspect]
     Active Substance: METOPROLOL
     Indication: Drug interaction
     Dosage: TIME INTERVAL: 0.33333333 DAYS
     Route: 065
  4. METOPROLOL [Suspect]
     Active Substance: METOPROLOL
     Indication: Drug interaction
     Dosage: TIME INTERVAL: 0.33333333 DAYS
     Route: 065
  5. METOPROLOL [Suspect]
     Active Substance: METOPROLOL
     Indication: Drug interaction
     Route: 065
  6. METOPROLOL [Suspect]
     Active Substance: METOPROLOL
     Indication: Drug interaction
     Route: 065
  7. DILTIAZEM HYDROCHLORIDE [Interacting]
     Active Substance: DILTIAZEM HYDROCHLORIDE
     Indication: Atrial fibrillation
     Dosage: DILTIAZEM HYDROCHLORIDE INJECTION SINGLE USE VIAL, DOSE FORM: SOLUTION INTRAVENOUS
     Route: 065
  8. PERINDOPRIL [Suspect]
     Active Substance: PERINDOPRIL
     Indication: Arrhythmia induced cardiomyopathy
     Route: 065
  9. PERINDOPRIL [Suspect]
     Active Substance: PERINDOPRIL
     Indication: Arrhythmia induced cardiomyopathy
     Route: 065
  10. PERINDOPRIL [Suspect]
     Active Substance: PERINDOPRIL
     Indication: Arrhythmia induced cardiomyopathy
     Route: 065
  11. PERINDOPRIL [Suspect]
     Active Substance: PERINDOPRIL
     Indication: Arrhythmia induced cardiomyopathy
     Route: 065
  12. SPIRONOLACTONE [Suspect]
     Active Substance: SPIRONOLACTONE
     Indication: Drug interaction
     Route: 065
  13. SPIRONOLACTONE [Suspect]
     Active Substance: SPIRONOLACTONE
     Indication: Drug interaction
     Route: 065
  14. SPIRONOLACTONE [Suspect]
     Active Substance: SPIRONOLACTONE
     Indication: Drug interaction
     Route: 065
  15. SPIRONOLACTONE [Suspect]
     Active Substance: SPIRONOLACTONE
     Indication: Drug interaction
     Route: 065
  16. SPIRONOLACTONE [Suspect]
     Active Substance: SPIRONOLACTONE
     Indication: Drug interaction
     Route: 065
  17. SPIRONOLACTONE [Suspect]
     Active Substance: SPIRONOLACTONE
     Indication: Drug interaction
     Route: 065
  18. SPIRONOLACTONE [Suspect]
     Active Substance: SPIRONOLACTONE
     Indication: Drug interaction
     Route: 065
  19. SPIRONOLACTONE [Suspect]
     Active Substance: SPIRONOLACTONE
     Indication: Drug interaction
     Route: 065
  20. ENZALUTAMIDE [Interacting]
     Active Substance: ENZALUTAMIDE
     Indication: Prostate cancer metastatic
     Route: 065
  21. ENZALUTAMIDE [Interacting]
     Active Substance: ENZALUTAMIDE
     Indication: Prostate cancer metastatic
     Route: 065
  22. FUROSEMIDE [Concomitant]
     Active Substance: FUROSEMIDE
     Indication: Atrial fibrillation
     Route: 065
  23. FUROSEMIDE [Concomitant]
     Active Substance: FUROSEMIDE
     Indication: Atrial fibrillation
     Dosage: DOSE FORM: NOT SPECIFIED
     Route: 065
  24. DAPAGLIFLOZIN [Suspect]
     Active Substance: DAPAGLIFLOZIN
     Indication: Drug interaction
     Dosage: DOSE FORM: NOT SPECIFIED
     Route: 065
  25. DAPAGLIFLOZIN [Suspect]
     Active Substance: DAPAGLIFLOZIN
     Indication: Drug interaction
     Route: 065
  26. DAPAGLIFLOZIN [Suspect]
     Active Substance: DAPAGLIFLOZIN
     Indication: Drug interaction
     Route: 065
  27. DAPAGLIFLOZIN [Suspect]
     Active Substance: DAPAGLIFLOZIN
     Indication: Drug interaction
     Route: 065
  28. DAPAGLIFLOZIN [Suspect]
     Active Substance: DAPAGLIFLOZIN
     Indication: Drug interaction
     Route: 065
  29. DAPAGLIFLOZIN [Suspect]
     Active Substance: DAPAGLIFLOZIN
     Indication: Drug interaction
     Route: 065
  30. DAPAGLIFLOZIN [Suspect]
     Active Substance: DAPAGLIFLOZIN
     Indication: Drug interaction
     Route: 065
  31. DAPAGLIFLOZIN [Suspect]
     Active Substance: DAPAGLIFLOZIN
     Indication: Drug interaction
     Route: 065
  32. DAPAGLIFLOZIN [Suspect]
     Active Substance: DAPAGLIFLOZIN
     Indication: Drug interaction
     Route: 065
  33. PERINDOPRIL [Interacting]
     Active Substance: PERINDOPRIL
     Indication: Drug interaction
     Route: 065
  34. PERINDOPRIL [Interacting]
     Active Substance: PERINDOPRIL
     Indication: Drug interaction
     Route: 065
  35. PERINDOPRIL [Interacting]
     Active Substance: PERINDOPRIL
     Indication: Drug interaction
     Route: 065
  36. ESCITALOPRAM [Concomitant]
     Active Substance: ESCITALOPRAM OXALATE
     Indication: Atrial fibrillation
     Dosage: ESCITALOPRAM OXALATE
     Route: 065
  37. ESCITALOPRAM [Concomitant]
     Active Substance: ESCITALOPRAM OXALATE
     Indication: Atrial fibrillation
     Route: 065
  38. DABIGATRAN [Concomitant]
     Active Substance: DABIGATRAN
     Indication: Atrial fibrillation
     Route: 065
  39. DABIGATRAN [Concomitant]
     Active Substance: DABIGATRAN
     Indication: Atrial fibrillation
     Route: 065
  40. DABIGATRAN [Concomitant]
     Active Substance: DABIGATRAN
     Indication: Atrial fibrillation
     Route: 065
  41. DILTIAZEM [Suspect]
     Active Substance: DILTIAZEM
     Indication: Prostate cancer metastatic
     Route: 065
  42. DILTIAZEM [Suspect]
     Active Substance: DILTIAZEM
     Indication: Prostate cancer metastatic
     Route: 065
  43. DILTIAZEM [Suspect]
     Active Substance: DILTIAZEM
     Indication: Prostate cancer metastatic
     Dosage: DOSE FORM: NOT SPECIFIED
     Route: 065
  44. DILTIAZEM [Suspect]
     Active Substance: DILTIAZEM
     Indication: Prostate cancer metastatic
     Route: 065
  45. XTANDI [Interacting]
     Active Substance: ENZALUTAMIDE
     Indication: Hormone-dependent prostate cancer
     Route: 065
  46. APIXABAN [Concomitant]
     Active Substance: APIXABAN
     Indication: Anticoagulant therapy
     Route: 065

REACTIONS (16)
  - Syncope [Recovering/Resolving]
  - Arrhythmia induced cardiomyopathy [Unknown]
  - Off label use [Unknown]
  - Cardiogenic shock [Recovered/Resolved]
  - Sinus bradycardia [Recovered/Resolved]
  - Drug titration error [Recovered/Resolved]
  - Cardiac failure [Unknown]
  - Drug interaction [Unknown]
  - Atrial fibrillation [Recovering/Resolving]
  - Dyspnoea [Recovering/Resolving]
  - Heart rate increased [Recovering/Resolving]
  - Hypervolaemia [Recovering/Resolving]
  - Labelled drug-drug interaction issue [Recovering/Resolving]
  - Oedema peripheral [Recovering/Resolving]
  - Orthopnoea [Recovering/Resolving]
  - Tachycardia [Unknown]
